FAERS Safety Report 11378104 (Version 1)
Quarter: 2015Q3

REPORT INFORMATION
  Report Type: Spontaneous
  Country: US (occurrence: US)
  Receive Date: 20150811
  Receipt Date: 20150811
  Transmission Date: 20151125
  Serious: No
  Sender: FDA-Public Use
  Company Number: US-ELI_LILLY_AND_COMPANY-US201201008571

PATIENT
  Sex: Male

DRUGS (4)
  1. OXYCODONE [Concomitant]
     Active Substance: OXYCODONE
  2. CIALIS [Suspect]
     Active Substance: TADALAFIL
     Indication: ERECTILE DYSFUNCTION
     Dosage: 10 MG, PRN
     Dates: start: 2010
  3. ANDROGEL [Concomitant]
     Active Substance: TESTOSTERONE
  4. FENATYL [Concomitant]
     Active Substance: FENTANYL

REACTIONS (3)
  - Suspected counterfeit product [Unknown]
  - Spinal column stenosis [Unknown]
  - Drug ineffective [Unknown]
